FAERS Safety Report 16942697 (Version 2)
Quarter: 2019Q4

REPORT INFORMATION
  Report Type: Spontaneous
  Country: US (occurrence: US)
  Receive Date: 20191021
  Receipt Date: 20191114
  Transmission Date: 20200122
  Serious: Yes (Hospitalization)
  Sender: FDA-Public Use
  Company Number: US-SHIRE-US201935123

PATIENT
  Sex: Female

DRUGS (1)
  1. NATPARA (PARATHYROID HORMONE) [Suspect]
     Active Substance: PARATHYROID HORMONE
     Indication: PRODUCT USED FOR UNKNOWN INDICATION
     Dosage: 50 MICROGRAM, UNKNOWN
     Route: 065

REACTIONS (6)
  - Vomiting [Unknown]
  - Recalled product [Unknown]
  - Product dose omission [Unknown]
  - Exposure during pregnancy [Unknown]
  - Blood calcium decreased [Unknown]
  - Nausea [Unknown]
